FAERS Safety Report 6271160-5 (Version None)
Quarter: 2009Q3

REPORT INFORMATION
  Report Type: 
  Country: None (occurrence: None)
  Receive Date: 20090717
  Receipt Date: 20090716
  Transmission Date: 20100115
  Serious: Yes (Other)
  Sender: FDA-Public Use
  Company Number: JP-RB-018018-09

PATIENT

DRUGS (1)
  1. LEPETAN INJECTION [Suspect]
     Indication: DRUG USE FOR UNKNOWN INDICATION
     Dosage: 0.25 MG - 0.5 MG THREE TIMES DAILY
     Route: 065

REACTIONS (1)
  - HALLUCINATION [None]
